FAERS Safety Report 14907213 (Version 3)
Quarter: 2021Q1

REPORT INFORMATION
  Report Type: Spontaneous
  Country: US (occurrence: US)
  Receive Date: 20180517
  Receipt Date: 20210105
  Transmission Date: 20210419
  Serious: Yes (Other)
  Sender: FDA-Public Use
  Company Number: US-INCYTE CORPORATION-2018IN004736

PATIENT

DRUGS (2)
  1. JAKAFI [Suspect]
     Active Substance: RUXOLITINIB
     Indication: POLYCYTHAEMIA VERA
     Dosage: 5 MG, BID
     Route: 048
     Dates: start: 20160620
  2. JAKAFI [Suspect]
     Active Substance: RUXOLITINIB
     Dosage: 5 MILLIGRAM, QD
     Route: 048
     Dates: start: 20160630

REACTIONS (10)
  - Asthenia [Unknown]
  - Platelet count abnormal [Recovering/Resolving]
  - Product dose omission in error [Unknown]
  - Dyspnoea exertional [Unknown]
  - Peripheral swelling [Recovered/Resolved]
  - Anaemia [Unknown]
  - Muscle spasms [Unknown]
  - Prostate cancer [Unknown]
  - Haemoglobin decreased [Unknown]
  - Haematocrit decreased [Unknown]
